FAERS Safety Report 5952656-X (Version None)
Quarter: 2008Q4

REPORT INFORMATION
  Report Type: 
  Country: None (occurrence: None)
  Receive Date: 20081029
  Receipt Date: 20080707
  Transmission Date: 20090506
  Serious: Yes (Hospitalization)
  Sender: FDA-Public Use
  Company Number: A0736489A

PATIENT
  Age: 55 Year
  Sex: Male

DRUGS (8)
  1. RYTHMOL SR [Suspect]
     Indication: ATRIAL FIBRILLATION
     Dosage: 225 MG / ORAL
     Route: 048
     Dates: start: 20071001, end: 20080524
  2. CARVEDILOL [Concomitant]
  3. DILTIAZEM HYDROCHLORIDE [Concomitant]
  4. LISINOPRIL [Concomitant]
  5. SIMAVSTATIN [Concomitant]
  6. WARFARIN SODIUM [Concomitant]
  7. DIGOXIN [Concomitant]
  8. FLUTICASONE+SALMETEROL [Concomitant]

REACTIONS (2)
  - ATRIAL FIBRILLATION [None]
  - DRUG INEFFECTIVE [None]
